FAERS Safety Report 7626774-4 (Version None)
Quarter: 2011Q3

REPORT INFORMATION
  Report Type: 
  Country: None (occurrence: None)
  Receive Date: 20110713
  Receipt Date: 20110701
  Transmission Date: 20111222
  Serious: Yes (Hospitalization)
  Sender: FDA-Public Use
  Company Number: 2011S1000988

PATIENT
  Age: 67 Year
  Sex: Male

DRUGS (3)
  1. COUMADIN /0014802/ [Concomitant]
  2. LIVALO [Suspect]
     Dosage: 2 MG;1X;PO; 2 MG;1X;PO
     Route: 048
     Dates: start: 20110601
  3. BENICAR [Concomitant]

REACTIONS (1)
  - PANCREATITIS [None]
